FAERS Safety Report 7314596-3 (Version None)
Quarter: 2011Q1

REPORT INFORMATION
  Report Type: 
  Country: None (occurrence: None)
  Receive Date: 20110225
  Receipt Date: 20101115
  Transmission Date: 20110831
  Serious: No
  Sender: FDA-Public Use
  Company Number: US-MYLANLABS-2010S1018843

PATIENT
  Age: 17 Year
  Sex: Male
  Weight: 71.22 kg

DRUGS (2)
  1. CLARAVIS [Suspect]
     Indication: ACNE CYSTIC
     Route: 048
  2. AMNESTEEM [Suspect]
     Indication: ACNE CYSTIC
     Route: 048

REACTIONS (3)
  - VISUAL IMPAIRMENT [None]
  - DISTURBANCE IN ATTENTION [None]
  - VISION BLURRED [None]
